FAERS Safety Report 8045290-1 (Version None)
Quarter: 2012Q1

REPORT INFORMATION
  Report Type: 
  Country: None (occurrence: None)
  Receive Date: 20120113
  Receipt Date: 20120111
  Transmission Date: 20120608
  Serious: Yes (Death)
  Sender: FDA-Public Use
  Company Number: FR-ROCHE-1029675

PATIENT
  Sex: Male
  Weight: 65 kg

DRUGS (1)
  1. VEMURAFENIB [Suspect]
     Indication: MALIGNANT MELANOMA
     Dates: start: 20111010, end: 20120103

REACTIONS (7)
  - DECREASED APPETITE [None]
  - MALIGNANT ASCITES [None]
  - HYPERKALAEMIA [None]
  - RENAL IMPAIRMENT [None]
  - VOMITING [None]
  - GENERAL PHYSICAL HEALTH DETERIORATION [None]
  - NAUSEA [None]
